FAERS Safety Report 11057293 (Version 2)
Quarter: 2015Q2

REPORT INFORMATION
  Report Type: Spontaneous
  Country: JP (occurrence: JP)
  Receive Date: 20150422
  Receipt Date: 20150504
  Transmission Date: 20150821
  Serious: Yes (Death)
  Sender: FDA-Public Use
  Company Number: JP-MYLANLABS-2015M1013205

PATIENT

DRUGS (2)
  1. CARBOPLATIN INJECTION 50 MG ^NK^ [Suspect]
     Active Substance: CARBOPLATIN
     Indication: OVARIAN CANCER STAGE II
     Dosage: 625 MG, TOTAL
     Route: 041
     Dates: start: 20141002, end: 20141119
  2. PACLITAXEL. [Suspect]
     Active Substance: PACLITAXEL
     Indication: OVARIAN CANCER STAGE II
     Dosage: 225 MG, TOTAL
     Route: 041
     Dates: start: 20141002, end: 20141119

REACTIONS (6)
  - Hypersensitivity [Unknown]
  - Disseminated intravascular coagulation [Fatal]
  - Rash [Recovered/Resolved]
  - Stomatitis [Recovered/Resolved]
  - Decreased appetite [Unknown]
  - Sepsis [Fatal]

NARRATIVE: CASE EVENT DATE: 20141002
